FAERS Safety Report 5099121-2 (Version None)
Quarter: 2006Q3

REPORT INFORMATION
  Report Type: 
  Country: None (occurrence: None)
  Receive Date: 20060731
  Receipt Date: 20051011
  Transmission Date: 20061208
  Serious: Yes (Other)
  Sender: FDA-Public Use
  Company Number: 218558

PATIENT
  Age: 45 Year
  Sex: Female

DRUGS (2)
  1. RITUXAN [Suspect]
     Indication: NON-HODGKIN'S LYMPHOMA
     Dosage: 705 MG
     Dates: start: 20050101, end: 20050601
  2. FLUDARABINE PHOSPHATE [Concomitant]

REACTIONS (1)
  - NEUTROPENIA [None]
